FAERS Safety Report 18468952 (Version 1)
Quarter: 2020Q4

REPORT INFORMATION
  Report Type: Spontaneous
  Country: US (occurrence: US)
  Receive Date: 20201105
  Receipt Date: 20201105
  Transmission Date: 20210114
  Serious: Yes (Other)
  Sender: FDA-Public Use
  Company Number: None

PATIENT
  Age: 8 Month
  Sex: Female
  Weight: 4.6 kg

DRUGS (10)
  1. CULTURE BABY DROP [Concomitant]
     Dates: start: 20200824
  2. HYDROMORPHONE LIQUID [Concomitant]
     Dates: start: 20200925
  3. LEVETIRACETAM SOLUTION [Concomitant]
     Dates: start: 20200903
  4. GAS RELIEF DROPS [Concomitant]
     Active Substance: DIMETHICONE
     Dates: start: 20201016
  5. LORAZEPAM CONCENTRATE [Concomitant]
     Dates: start: 20200324
  6. PHENOBRABITAL [Concomitant]
     Dates: start: 20200930
  7. METHADONE CONCENTRATE [Concomitant]
     Dates: start: 20200930
  8. SULFATRIM [Suspect]
     Active Substance: SULFAMETHOXAZOLE\TRIMETHOPRIM
     Indication: URINARY TRACT INFECTION
     Route: 048
     Dates: start: 20201102, end: 20201103
  9. ACETAMINOPHEN SUSPENSION [Concomitant]
     Dates: start: 20201103
  10. HALOPERIDOL CONCENTRATE [Concomitant]
     Active Substance: HALOPERIDOL
     Dates: start: 20201005

REACTIONS (4)
  - Infection [None]
  - Incorrect dose administered [None]
  - Product dispensing error [None]
  - Seizure [None]

NARRATIVE: CASE EVENT DATE: 20201103
